FAERS Safety Report 12684406 (Version 13)
Quarter: 2018Q3

REPORT INFORMATION
  Report Type: Report from Study
  Country: US (occurrence: US)
  Receive Date: 20160825
  Receipt Date: 20180713
  Transmission Date: 20181010
  Serious: Yes (Hospitalization, Other)
  Sender: FDA-Public Use
  Company Number: US-AEGERION PHARMACEUTICAL INC.-AEGR002387

PATIENT
  Age: 14 Year
  Sex: Female
  Weight: 56.3 kg

DRUGS (13)
  1. METRELEPTIN [Suspect]
     Active Substance: METRELEPTIN
     Indication: LIPODYSTROPHY ACQUIRED
     Dosage: 2.5 MG, QD
     Route: 058
     Dates: start: 20140821, end: 20141126
  2. METRELEPTIN [Suspect]
     Active Substance: METRELEPTIN
     Indication: PARTIAL LIPODYSTROPHY
     Dosage: 3.75 MG, QD
     Route: 058
     Dates: start: 20150314, end: 20160201
  3. ERGOCALCIFEROL. [Concomitant]
     Active Substance: ERGOCALCIFEROL
     Indication: VITAMIN D DECREASED
     Dosage: 50000 IU, 1XWEEKLY
     Route: 048
     Dates: start: 20160722
  4. METRELEPTIN [Suspect]
     Active Substance: METRELEPTIN
     Dosage: 3 MG, QD
     Route: 058
     Dates: start: 20160202, end: 20160313
  5. METRELEPTIN [Suspect]
     Active Substance: METRELEPTIN
     Dosage: 3.75 MG, QD
     Route: 058
     Dates: start: 20160314, end: 20160828
  6. METRELEPTIN [Suspect]
     Active Substance: METRELEPTIN
     Dosage: 1.25 MG, QD
     Route: 058
     Dates: start: 20160901, end: 20160905
  7. NPH INSULIN [Concomitant]
     Active Substance: INSULIN BEEF
     Indication: DIABETES MELLITUS
     Dosage: 2 IU, CONTINUOUS VIA PUMP
     Dates: start: 20171108
  8. NPH INSULIN [Concomitant]
     Active Substance: INSULIN BEEF
     Dosage: 6 IU, CONTINUOUS VIA PUMP
     Dates: start: 20171108
  9. VITAMIN D3 [Concomitant]
     Active Substance: CHOLECALCIFEROL
     Indication: VITAMIN D DEFICIENCY
     Dosage: 1000 IU, QD
     Route: 048
  10. METRELEPTIN [Suspect]
     Active Substance: METRELEPTIN
     Indication: NON-ALCOHOLIC STEATOHEPATITIS
     Dosage: 3 MG, QD
     Route: 058
     Dates: start: 20141127, end: 20150313
  11. LANTUS [Concomitant]
     Active Substance: INSULIN GLARGINE
     Indication: DIABETES MELLITUS
     Dosage: 60 IU, QDM
     Route: 058
     Dates: start: 20170511
  12. METRELEPTIN [Suspect]
     Active Substance: METRELEPTIN
     Dosage: 2.5 MG, QD
     Route: 058
     Dates: start: 20160829, end: 20160831
  13. METFORMIN [Concomitant]
     Active Substance: METFORMIN HYDROCHLORIDE
     Indication: DIABETES MELLITUS
     Dosage: 500 MG, BID
     Route: 048
     Dates: start: 20160720

REACTIONS (3)
  - Hypertriglyceridaemia [Not Recovered/Not Resolved]
  - Neutralising antibodies positive [Not Recovered/Not Resolved]
  - Type 1 diabetes mellitus [Recovered/Resolved]

NARRATIVE: CASE EVENT DATE: 20160129
